FAERS Safety Report 5049096-7 (Version None)
Quarter: 2006Q3

REPORT INFORMATION
  Report Type: 
  Country: None (occurrence: None)
  Receive Date: 20060706
  Receipt Date: 20060328
  Transmission Date: 20061208
  Serious: No
  Sender: FDA-Public Use
  Company Number: US200602005264

PATIENT
  Age: 29 Year
  Sex: Female

DRUGS (2)
  1. CYMBALTA [Suspect]
     Indication: PAIN IN EXTREMITY
     Dosage: 30 MG, ORAL
     Route: 048
     Dates: start: 20060217, end: 20060222
  2. PREGABALIN (PREGABALIN) [Concomitant]

REACTIONS (2)
  - JAW DISORDER [None]
  - MUSCLE CONTRACTIONS INVOLUNTARY [None]
